FAERS Safety Report 24911174 (Version 3)
Quarter: 2025Q3

REPORT INFORMATION
  Report Type: Report from Study
  Country: US (occurrence: US)
  Receive Date: 20250131
  Receipt Date: 20250704
  Transmission Date: 20251021
  Serious: No
  Sender: SUNOVION
  Company Number: US-SMPA-2025SPA000990AA

PATIENT

DRUGS (4)
  1. ORGOVYX [Suspect]
     Active Substance: RELUGOLIX
     Indication: Prostate cancer
     Route: 048
     Dates: start: 20250106, end: 20250106
  2. ORGOVYX [Suspect]
     Active Substance: RELUGOLIX
     Dosage: 120 MG, QD
     Route: 048
     Dates: start: 20250107
  3. ORGOVYX [Suspect]
     Active Substance: RELUGOLIX
     Dosage: 120 MG, QD
     Route: 048
     Dates: start: 20250129
  4. ORGOVYX [Suspect]
     Active Substance: RELUGOLIX
     Dates: start: 20250107

REACTIONS (7)
  - Sinus disorder [Unknown]
  - Cough [Unknown]
  - Affect lability [Unknown]
  - Weight fluctuation [Unknown]
  - Night sweats [Unknown]
  - Dizziness [Unknown]
  - Hot flush [Unknown]
